FAERS Safety Report 18570092 (Version 3)
Quarter: 2021Q1

REPORT INFORMATION
  Report Type: Report from Study
  Country: US (occurrence: US)
  Receive Date: 20201202
  Receipt Date: 20210107
  Transmission Date: 20210419
  Serious: No
  Sender: FDA-Public Use
  Company Number: NVSC2020US309570

PATIENT
  Age: 76 Year
  Sex: Male

DRUGS (2)
  1. ENTRESTO [Suspect]
     Active Substance: SACUBITRIL\VALSARTAN
     Dosage: 0.5 DF, BID
     Route: 048
  2. ENTRESTO [Suspect]
     Active Substance: SACUBITRIL\VALSARTAN
     Indication: PRODUCT USED FOR UNKNOWN INDICATION
     Dosage: UNK UNK, BID
     Route: 048
     Dates: start: 20201114

REACTIONS (12)
  - Memory impairment [Unknown]
  - Weight fluctuation [Unknown]
  - Cough [Unknown]
  - Decreased activity [Unknown]
  - Weight decreased [Unknown]
  - Throat clearing [Unknown]
  - Fatigue [Unknown]
  - Wrong technique in product usage process [Unknown]
  - Oropharyngeal discomfort [Unknown]
  - Hypotension [Unknown]
  - Rhinorrhoea [Unknown]
  - Anxiety [Unknown]
